FAERS Safety Report 9246275 (Version 2)
Quarter: 2013Q3

REPORT INFORMATION
  Report Type: Spontaneous
  Country: JP (occurrence: JP)
  Receive Date: 20130422
  Receipt Date: 20130723
  Transmission Date: 20140515
  Serious: Yes (Hospitalization, Other)
  Sender: FDA-Public Use
  Company Number: JP-PFIZER INC-2013120130

PATIENT
  Age: 5 Decade
  Sex: Male

DRUGS (7)
  1. ZITHROMAC [Suspect]
     Indication: PROPHYLAXIS
     Dosage: 1200 MG, WEEKLY
     Route: 048
     Dates: start: 20080725, end: 20120223
  2. RETROVIR [Concomitant]
     Indication: HIV INFECTION
     Dosage: 400 MG, 1X/DAY
     Route: 048
     Dates: start: 200410
  3. EPIVIR [Concomitant]
     Indication: HIV INFECTION
     Dosage: 300 MG, 1X/DAY
     Route: 048
     Dates: start: 200410, end: 20110517
  4. ZERIT [Concomitant]
     Indication: HIV INFECTION
     Dosage: 60 MG, 1X/DAY
     Route: 048
     Dates: end: 20110517
  5. KALETRA [Concomitant]
     Indication: HIV INFECTION
     Dosage: UNK
     Route: 048
     Dates: end: 20110517
  6. LEXIVA [Concomitant]
     Indication: HIV INFECTION
     Dosage: 1400 MG, 1X/DAY
     Route: 048
     Dates: start: 200410
  7. BAKTAR [Concomitant]
     Indication: ANTIFUNGAL PROPHYLAXIS
     Dosage: 1 DF, 1X/DAY
     Route: 048
     Dates: start: 20080725

REACTIONS (2)
  - Pulmonary tuberculosis [Recovering/Resolving]
  - Lymph node tuberculosis [Recovering/Resolving]
